FAERS Safety Report 18479665 (Version 1)
Quarter: 2020Q4

REPORT INFORMATION
  Report Type: Spontaneous
  Country: BR (occurrence: BR)
  Receive Date: 20201109
  Receipt Date: 20201109
  Transmission Date: 20210114
  Serious: Yes (Death, Hospitalization, Other)
  Sender: FDA-Public Use
  Company Number: BR-PFIZER INC-2020429680

PATIENT
  Age: 3 Year
  Sex: Female

DRUGS (20)
  1. CYTARABINE. [Suspect]
     Active Substance: CYTARABINE
     Indication: ACUTE MONOCYTIC LEUKAEMIA
     Dosage: 3 G/M2, CYCLIC
     Dates: start: 2014
  2. CYTARABINE. [Suspect]
     Active Substance: CYTARABINE
     Dosage: UNK UNK, CYCLIC
     Dates: start: 2014
  3. MERCAPTOPURINE. [Suspect]
     Active Substance: MERCAPTOPURINE
     Indication: ACUTE MONOCYTIC LEUKAEMIA
     Dosage: UNK UNK, CYCLIC
     Dates: start: 2014
  4. ETOPOSIDE. [Suspect]
     Active Substance: ETOPOSIDE
     Indication: ACUTE MONOCYTIC LEUKAEMIA
     Dosage: UNK UNK, CYCLIC
     Dates: start: 2014
  5. ETOPOSIDE. [Suspect]
     Active Substance: ETOPOSIDE
     Dosage: UNK UNK, CYCLIC
     Dates: start: 2014
  6. CYTARABINE. [Suspect]
     Active Substance: CYTARABINE
     Dosage: MAINTENANCE CYCLE
     Dates: start: 2014
  7. CYTARABINE. [Suspect]
     Active Substance: CYTARABINE
     Dosage: 1 G/M2, CYCLIC
     Dates: start: 2014
  8. CEFUROXIME. [Concomitant]
     Active Substance: CEFUROXIME
     Dosage: UNK
  9. FLUDARABINE PHOSPHATE. [Suspect]
     Active Substance: FLUDARABINE PHOSPHATE
     Indication: ACUTE MONOCYTIC LEUKAEMIA
     Dosage: UNK UNK, CYCLIC
     Dates: start: 201401
  10. IDARUBICIN HCL [Suspect]
     Active Substance: IDARUBICIN HYDROCHLORIDE
     Indication: ACUTE MONOCYTIC LEUKAEMIA
     Dosage: UNK UNK, CYCLIC
     Dates: start: 2014
  11. CYTARABINE. [Suspect]
     Active Substance: CYTARABINE
     Dosage: 3 G/M2, CYCLIC
     Dates: start: 2014
  12. CYTARABINE. [Suspect]
     Active Substance: CYTARABINE
     Dosage: 0.5 G/M2, CYCLIC
     Dates: start: 2014
  13. FILGRASTIM [Suspect]
     Active Substance: FILGRASTIM
     Indication: ACUTE MONOCYTIC LEUKAEMIA
     Dosage: UNK UNK, CYCLIC
     Dates: start: 2014
  14. CEFEPIME [Concomitant]
     Active Substance: CEFEPIME HYDROCHLORIDE
     Dosage: UNK
  15. ETOPOSIDE. [Suspect]
     Active Substance: ETOPOSIDE
     Dosage: UNK UNK, CYCLIC
     Dates: start: 2014
  16. IDARUBICIN HCL [Suspect]
     Active Substance: IDARUBICIN HYDROCHLORIDE
     Dosage: UNK UNK, CYCLIC
     Dates: start: 2014
  17. VANCOMYCIN [Concomitant]
     Active Substance: VANCOMYCIN
     Dosage: UNK
  18. MITOXANTRONE HCL [Suspect]
     Active Substance: MITOXANTRONE HYDROCHLORIDE
     Indication: ACUTE MONOCYTIC LEUKAEMIA
     Dosage: UNK UNK, CYCLIC (2 CYCLES)
     Dates: start: 2014
  19. IDARUBICIN HCL [Suspect]
     Active Substance: IDARUBICIN HYDROCHLORIDE
     Dosage: UNK UNK, CYCLIC
     Dates: start: 2014
  20. CYTARABINE. [Suspect]
     Active Substance: CYTARABINE
     Dosage: UNK UNK, CYCLIC
     Dates: start: 2014

REACTIONS (3)
  - Haemophagocytic lymphohistiocytosis [Not Recovered/Not Resolved]
  - Febrile neutropenia [Unknown]
  - Pancytopenia [Unknown]

NARRATIVE: CASE EVENT DATE: 2014
